FAERS Safety Report 25923699 (Version 2)
Quarter: 2025Q4

REPORT INFORMATION
  Report Type: Spontaneous
  Country: US (occurrence: US)
  Receive Date: 20251015
  Receipt Date: 20251027
  Transmission Date: 20260118
  Serious: Yes (Hospitalization, Disabling, Other)
  Sender: MACLEODS
  Company Number: US-MACLEODS PHARMA-MAC2025055793

PATIENT

DRUGS (3)
  1. LIDOCAINE [Suspect]
     Active Substance: LIDOCAINE
     Indication: Anaesthesia eye
     Dosage: 2%
     Route: 035
  2. LIDOCAINE [Suspect]
     Active Substance: LIDOCAINE
     Indication: Neovascular age-related macular degeneration
  3. AFLIBERCEPT [Concomitant]
     Active Substance: AFLIBERCEPT
     Indication: Neovascular age-related macular degeneration
     Route: 035

REACTIONS (8)
  - Blindness transient [Recovered/Resolved]
  - Intraocular pressure increased [Recovered/Resolved]
  - Incorrect route of product administration [Recovered/Resolved]
  - Accidental exposure to product [Recovered/Resolved]
  - Product preparation error [Recovered/Resolved]
  - Visual acuity reduced [Recovered/Resolved]
  - Retinogram abnormal [Recovered/Resolved]
  - Medication error [Unknown]
